FAERS Safety Report 5953843-7 (Version None)
Quarter: 2008Q4

REPORT INFORMATION
  Report Type: 
  Country: None (occurrence: None)
  Receive Date: 20081114
  Receipt Date: 20081104
  Transmission Date: 20090506
  Serious: Yes (Hospitalization, Other)
  Sender: FDA-Public Use
  Company Number: CA-ELI_LILLY_AND_COMPANY-CA200806000137

PATIENT
  Age: 51 Year
  Sex: Female

DRUGS (21)
  1. FORTEO [Suspect]
     Indication: OSTEOPOROSIS
     Dosage: 20 UG, DAILY (1/D)
     Route: 058
     Dates: start: 20070523, end: 20080509
  2. FORTEO [Suspect]
     Dates: start: 20080101, end: 20080101
  3. PERCOCET [Concomitant]
  4. NEXIUM [Concomitant]
  5. DOMPERIDONE [Concomitant]
  6. EFFEXOR [Concomitant]
  7. APO-CAL [Concomitant]
  8. IRON PREPARATIONS [Concomitant]
  9. DRISDOL [Concomitant]
  10. RIVOTRIL [Concomitant]
  11. FLEXERIL [Concomitant]
  12. NOVOQUININE [Concomitant]
  13. ELAVIL [Concomitant]
  14. DALMANE [Concomitant]
  15. SINGULAIR [Concomitant]
  16. VENTOLIN                                /SCH/ [Concomitant]
  17. ADVAIR DISKUS 100/50 [Concomitant]
  18. SPIRIVA [Concomitant]
  19. COUMADIN [Concomitant]
  20. OXYCONTIN [Concomitant]
  21. MIACALCIN [Concomitant]

REACTIONS (10)
  - ANKLE FRACTURE [None]
  - COUGH [None]
  - EMPHYSEMA [None]
  - ENTEROCOCCAL INFECTION [None]
  - LUNG DISORDER [None]
  - PHLEBITIS [None]
  - PNEUMONIA [None]
  - PULMONARY EMBOLISM [None]
  - SPINAL FRACTURE [None]
  - STAPHYLOCOCCAL INFECTION [None]
